FAERS Safety Report 11643525 (Version 1)
Quarter: 2015Q4

REPORT INFORMATION
  Report Type: Spontaneous
  Country: US (occurrence: US)
  Receive Date: 20151020
  Receipt Date: 20151020
  Transmission Date: 20160304
  Serious: Yes (Death, Hospitalization)
  Sender: FDA-Public Use
  Company Number: PHEH2015US020650

PATIENT
  Sex: Male
  Weight: 55.4 kg

DRUGS (1)
  1. VOTRIENT [Suspect]
     Active Substance: PAZOPANIB HYDROCHLORIDE
     Indication: METASTATIC RENAL CELL CARCINOMA
     Dosage: 200 MG, QD
     Route: 048
     Dates: start: 20150513, end: 20150519

REACTIONS (5)
  - Malnutrition [Unknown]
  - Dehydration [Unknown]
  - Hypercalcaemia [Unknown]
  - Hypoglycaemia [Unknown]
  - Malignant neoplasm progression [Fatal]
